FAERS Safety Report 22027197 (Version 1)
Quarter: 2023Q1

REPORT INFORMATION
  Report Type: Spontaneous
  Country: US (occurrence: None)
  Receive Date: 20230220
  Receipt Date: 20230220
  Transmission Date: 20230418
  Serious: Yes (Other)
  Sender: FDA-Public Use
  Company Number: None

PATIENT
  Sex: Male
  Weight: 18.9 kg

DRUGS (3)
  1. AMOXICILLIN [Suspect]
     Active Substance: AMOXICILLIN
     Indication: Pharyngitis streptococcal
     Dosage: 7ML TWICE A DAY ORAL
     Route: 048
     Dates: start: 20230208, end: 20230217
  2. IRON [Concomitant]
     Active Substance: IRON
  3. VITAMIN D [Concomitant]
     Active Substance: VITAMIN D NOS

REACTIONS (3)
  - Scarlet fever [None]
  - Drug effect less than expected [None]
  - Product substitution issue [None]
